FAERS Safety Report 10466124 (Version 2)
Quarter: 2014Q4

REPORT INFORMATION
  Report Type: Spontaneous
  Country: IT (occurrence: IT)
  Receive Date: 20140922
  Receipt Date: 20141111
  Transmission Date: 20150528
  Serious: Yes (Other)
  Sender: FDA-Public Use
  Company Number: IT-ACCORD-025977

PATIENT
  Age: 64 Year
  Sex: Female
  Weight: 80 kg

DRUGS (4)
  1. AVASTIN [Concomitant]
     Active Substance: BEVACIZUMAB
     Indication: COLON CANCER METASTATIC
     Route: 042
     Dates: start: 20140103, end: 20140613
  2. SUN PHARMA OXALIPLATIN [Suspect]
     Active Substance: OXALIPLATIN
     Indication: COLON CANCER METASTATIC
     Dosage: STRENGTH: 5 MG/ML, 1 VIAL IN GLASS 100 ML
     Route: 042
     Dates: start: 20140103
  3. TEVA CALCIUM LEVOFOLINATE [Suspect]
     Active Substance: LEVOLEUCOVORIN CALCIUM
     Indication: COLON CANCER METASTATIC
     Dosage: STRENGTH: 175 MG
     Route: 042
     Dates: start: 20140103
  4. ACCORD FLUOROURACIL [Suspect]
     Active Substance: FLUOROURACIL
     Indication: COLON CANCER METASTATIC
     Dosage: STRENGTH: 50 MG/ML
     Route: 042
     Dates: start: 20140103

REACTIONS (2)
  - Abdominal pain [Recovered/Resolved]
  - Diarrhoea [Recovered/Resolved]

NARRATIVE: CASE EVENT DATE: 20140615
